FAERS Safety Report 5467095-8 (Version None)
Quarter: 2007Q3

REPORT INFORMATION
  Report Type: 
  Country: None (occurrence: None)
  Receive Date: 20070921
  Receipt Date: 20070921
  Transmission Date: 20080115
  Serious: Yes (Life-Threatening, Other)
  Sender: FDA-Public Use
  Company Number: None

PATIENT
  Sex: Female
  Weight: 110.2241 kg

DRUGS (1)
  1. CHANTIX [Suspect]
     Indication: SMOKER
     Dosage: BID PO
     Route: 048
     Dates: start: 20070101, end: 20070201

REACTIONS (2)
  - DEPRESSION [None]
  - SUICIDAL IDEATION [None]
